FAERS Safety Report 10742067 (Version 1)
Quarter: 2015Q1

REPORT INFORMATION
  Report Type: Spontaneous
  Country: US (occurrence: None)
  Receive Date: 20150123
  Receipt Date: 20150123
  Transmission Date: 20150721
  Serious: No
  Sender: FDA-Public Use
  Company Number: None

PATIENT
  Age: 42 Year
  Sex: Female

DRUGS (1)
  1. NORCO [Suspect]
     Active Substance: ACETAMINOPHEN\HYDROCODONE BITARTRATE
     Indication: ANALGESIC THERAPY
     Dosage: 2 TABLETS?THREE TIMES DAILY?TAKEN BY MOUTH
     Route: 048
     Dates: start: 20141226, end: 20150121

REACTIONS (5)
  - Poisoning [None]
  - Headache [None]
  - Product quality issue [None]
  - Malaise [None]
  - Drug ineffective [None]

NARRATIVE: CASE EVENT DATE: 20141226
